FAERS Safety Report 23522039 (Version 4)
Quarter: 2025Q1

REPORT INFORMATION
  Report Type: Report from Study
  Country: CA (occurrence: CA)
  Receive Date: 20240214
  Receipt Date: 20250321
  Transmission Date: 20250409
  Serious: Yes (Other)
  Sender: TAKEDA
  Company Number: CA-TAKEDA-2021TUS000276

PATIENT
  Age: 60 Year
  Sex: Female

DRUGS (19)
  1. VEDOLIZUMAB [Suspect]
     Active Substance: VEDOLIZUMAB
     Indication: Crohn^s disease
  2. VEDOLIZUMAB [Suspect]
     Active Substance: VEDOLIZUMAB
  3. VEDOLIZUMAB [Suspect]
     Active Substance: VEDOLIZUMAB
     Dosage: 300 MILLIGRAM, Q4WEEKS
     Dates: start: 20221108
  4. VEDOLIZUMAB [Suspect]
     Active Substance: VEDOLIZUMAB
     Dosage: 300 MILLIGRAM, Q4WEEKS
     Dates: end: 20240305
  5. VEDOLIZUMAB [Suspect]
     Active Substance: VEDOLIZUMAB
  6. DIPENTUM [Concomitant]
     Active Substance: OLSALAZINE SODIUM
     Dosage: 250 MILLIGRAM, BID
  7. Cortiment [Concomitant]
     Dosage: 9 MILLIGRAM, QD
  8. PENTASA [Concomitant]
     Active Substance: MESALAMINE
  9. CRESTOR [Concomitant]
     Active Substance: ROSUVASTATIN CALCIUM
  10. PAXIL [Concomitant]
     Active Substance: PAROXETINE HYDROCHLORIDE
  11. AMITRIPTYLINE [Concomitant]
     Active Substance: AMITRIPTYLINE
  12. METFORMIN [Concomitant]
     Active Substance: METFORMIN HYDROCHLORIDE
  13. POLYETHYLENE GLYCOL 3350 [Concomitant]
     Active Substance: POLYETHYLENE GLYCOL 3350
  14. ASPIRIN [Concomitant]
     Active Substance: ASPIRIN
  15. PERINDOPRIL [Concomitant]
     Active Substance: PERINDOPRIL
  16. QUETIAPINE [Concomitant]
     Active Substance: QUETIAPINE
  17. PAROXETINE [Concomitant]
     Active Substance: PAROXETINE
  18. ZOMIG [Concomitant]
     Active Substance: ZOLMITRIPTAN
  19. VENTOLIN [Concomitant]
     Active Substance: ALBUTEROL SULFATE

REACTIONS (12)
  - Lower respiratory tract infection [Unknown]
  - Paranasal sinus discomfort [Recovering/Resolving]
  - Nasal discharge discolouration [Recovering/Resolving]
  - Off label use [Unknown]
  - Sputum discoloured [Recovering/Resolving]
  - Feeling cold [Recovered/Resolved]
  - Chills [Recovered/Resolved]
  - Nasopharyngitis [Recovering/Resolving]
  - Headache [Recovered/Resolved]
  - Fatigue [Recovered/Resolved]
  - Sinusitis [Unknown]
  - Cough [Recovering/Resolving]

NARRATIVE: CASE EVENT DATE: 20221108
